FAERS Safety Report 18209087 (Version 1)
Quarter: 2020Q3

REPORT INFORMATION
  Report Type: Spontaneous
  Country: GB (occurrence: GB)
  Receive Date: 20200828
  Receipt Date: 20200828
  Transmission Date: 20201103
  Serious: Yes (Congenital Anomaly, Other)
  Sender: FDA-Public Use
  Company Number: GB-GLAXOSMITHKLINE-GB2020GSK169470

PATIENT
  Sex: Male

DRUGS (1)
  1. ACICLOVIR [Suspect]
     Active Substance: ACYCLOVIR
     Indication: HERPES SIMPLEX
     Dosage: UNK
     Route: 064

REACTIONS (17)
  - Skin ulcer [Unknown]
  - White matter lesion [Unknown]
  - Seizure [Unknown]
  - Congenital central nervous system anomaly [Unknown]
  - Encephalomalacia [Unknown]
  - Premature baby [Unknown]
  - Gliosis [Unknown]
  - Motor developmental delay [Unknown]
  - Vertical infection transmission [Unknown]
  - Herpes simplex [Unknown]
  - Skin lesion [Unknown]
  - Porencephaly [Unknown]
  - Foetal exposure during pregnancy [Unknown]
  - Infantile spasms [Unknown]
  - Cerebral disorder [Unknown]
  - Microcephaly [Unknown]
  - Polymicrogyria [Unknown]
